FAERS Safety Report 17548189 (Version 1)
Quarter: 2020Q1

REPORT INFORMATION
  Report Type: Spontaneous
  Country: HR (occurrence: HR)
  Receive Date: 20200317
  Receipt Date: 20200317
  Transmission Date: 20200409
  Serious: Yes (Life-Threatening, Hospitalization, Disabling)
  Sender: FDA-Public Use
  Company Number: HR-TEVA-2020-HR-1201429

PATIENT
  Age: 71 Year
  Sex: Male
  Weight: 94 kg

DRUGS (6)
  1. CISPLATIN PLIVA [Suspect]
     Active Substance: CISPLATIN
     Indication: SQUAMOUS CELL CARCINOMA OF LUNG
     Dosage: 130 MG
     Route: 042
     Dates: start: 20191129, end: 20191217
  2. IRUMED [Concomitant]
     Indication: HYPERTENSION
     Dosage: 20 MG
     Route: 048
  3. SPIOLTO RESPIMAT [Concomitant]
     Active Substance: OLODATEROL HYDROCHLORIDE\TIOTROPIUM BROMIDE MONOHYDRATE
     Indication: CHRONIC OBSTRUCTIVE PULMONARY DISEASE
     Dosage: 5 MCG
     Route: 055
  4. NORVASC [Concomitant]
     Active Substance: AMLODIPINE BESYLATE
     Indication: HYPERTENSION
     Dosage: 5 MG
     Route: 048
  5. VILSPOX [Concomitant]
     Active Substance: METFORMIN HYDROCHLORIDE\VILDAGLIPTIN
     Indication: DIABETES MELLITUS
     Dosage: 2 DF
     Route: 048
  6. ACIPAN [Concomitant]
     Active Substance: PANTOPRAZOLE SODIUM
     Indication: GASTRITIS
     Dosage: 40 MG
     Route: 048

REACTIONS (2)
  - Peripheral arterial occlusive disease [Recovered/Resolved with Sequelae]
  - Peripheral artery thrombosis [Recovered/Resolved with Sequelae]

NARRATIVE: CASE EVENT DATE: 20191227
